FAERS Safety Report 9300226 (Version 1)
Quarter: 2013Q2

REPORT INFORMATION
  Report Type: Spontaneous
  Country: CH (occurrence: CH)
  Receive Date: 20130521
  Receipt Date: 20130521
  Transmission Date: 20140414
  Serious: Yes (Life-Threatening)
  Sender: FDA-Public Use
  Company Number: PHHY2013CH048803

PATIENT
  Age: 16 Year
  Sex: Male

DRUGS (9)
  1. RITALIN [Suspect]
     Indication: ATTENTION DEFICIT/HYPERACTIVITY DISORDER
     Dosage: UNK UKN, UNK
     Route: 048
     Dates: end: 2006
  2. CONCERTA [Suspect]
     Dosage: UNK UKN, UNK
     Dates: start: 2006, end: 2009
  3. CIPRALEX [Concomitant]
     Dosage: 10 MG, QD
  4. TEMESTA [Concomitant]
     Dosage: 1 MG, QD
  5. COLCHICINE [Concomitant]
     Dosage: 0.5 MG, QD
  6. INSPRA [Concomitant]
     Dosage: 25 MG, QD
  7. BELOC ZOK [Concomitant]
     Dosage: 25 MG, QD
  8. LISINOPRIL [Concomitant]
     Dosage: 2.5 MG, QD
  9. NICOTINELL TTS [Concomitant]
     Dosage: 21 MG, HOUR
     Route: 062

REACTIONS (1)
  - Cardiomyopathy [Not Recovered/Not Resolved]
